FAERS Safety Report 19170053 (Version 1)
Quarter: 2021Q2

REPORT INFORMATION
  Report Type: Spontaneous
  Country: US (occurrence: US)
  Receive Date: 20210422
  Receipt Date: 20210422
  Transmission Date: 20210717
  Serious: No
  Sender: FDA-Public Use
  Company Number: US-BEH-2021130498

PATIENT
  Age: 30 Year
  Sex: Male

DRUGS (1)
  1. HIZENTRA [Suspect]
     Active Substance: HUMAN IMMUNOGLOBULIN G
     Indication: IMMUNODEFICIENCY COMMON VARIABLE
     Dosage: 7 GRAM, QW
     Route: 058
     Dates: start: 20210114

REACTIONS (5)
  - Pyrexia [Unknown]
  - Headache [Unknown]
  - Pain [Unknown]
  - Swelling [Unknown]
  - Pruritus [Unknown]
